FAERS Safety Report 8889549 (Version 2)
Quarter: 2012Q4

REPORT INFORMATION
  Report Type: 
  Country: NL (occurrence: NL)
  Receive Date: 20121107
  Receipt Date: 20121205
  Transmission Date: 20130627
  Serious: Yes (Other)
  Sender: FDA-Public Use
  Company Number: PHHY2012NL101363

PATIENT
  Sex: Female

DRUGS (10)
  1. CIPROFLOXACIN [Suspect]
     Dosage: 1 DF, BID
     Route: 048
     Dates: start: 20121101, end: 20121115
  2. PROGRAFT [Concomitant]
     Dosage: 0.5 mg, BID
  3. PROGRAFT [Concomitant]
     Dosage: 2 DF, TID
  4. CELLCEPT [Concomitant]
     Dosage: 2 DF, QD
  5. PREDNISOLON [Concomitant]
     Dosage: 1 DF, BID
  6. BISOPROLOL [Concomitant]
     Dosage: 2 DF, BID
  7. ENALAPRIL [Concomitant]
     Dosage: 2 DF, QD
  8. FUROSEMIDE [Concomitant]
     Dosage: 2 DF, BID
  9. OMEPRAZOL [Concomitant]
     Dosage: 1 DF, QD
  10. VIDISIC [Concomitant]

REACTIONS (1)
  - Visual impairment [Recovered/Resolved]
